FAERS Safety Report 6066550-X (Version None)
Quarter: 2009Q1

REPORT INFORMATION
  Report Type: 
  Country: None (occurrence: None)
  Receive Date: 20090205
  Receipt Date: 20090130
  Transmission Date: 20090719
  Serious: Yes (Hospitalization)
  Sender: FDA-Public Use
  Company Number: A0745310A

PATIENT
  Age: 73 Year
  Sex: Female
  Weight: 90.9 kg

DRUGS (10)
  1. AVANDIA [Suspect]
     Dosage: 4MG TWICE PER DAY
     Route: 048
     Dates: start: 20020801, end: 20070301
  2. SYNTHROID [Concomitant]
  3. CLONIDINE HCL [Concomitant]
  4. LISINOPRIL [Concomitant]
  5. VIOXX [Concomitant]
  6. HYDROCODONE [Concomitant]
  7. DIAZEPAM [Concomitant]
  8. SYNTHROID [Concomitant]
  9. LEVOTHYROXINE [Concomitant]
  10. BEXTRA [Concomitant]

REACTIONS (1)
  - MYOCARDIAL INFARCTION [None]
